FAERS Safety Report 9434187 (Version 1)
Quarter: 2013Q3

REPORT INFORMATION
  Report Type: Spontaneous
  Country: US (occurrence: None)
  Receive Date: 20130730
  Receipt Date: 20130730
  Transmission Date: 20140515
  Serious: Yes (Hospitalization)
  Sender: FDA-Public Use
  Company Number: None

PATIENT
  Sex: Male
  Weight: 85 kg

DRUGS (3)
  1. AXONA [Suspect]
     Indication: DEMENTIA ALZHEIMER^S TYPE
     Dosage: SEE CONT PAGE
     Route: 048
     Dates: start: 201302
  2. TRICOR [Concomitant]
  3. ZETIA [Concomitant]

REACTIONS (11)
  - Pneumonia aspiration [None]
  - Respiratory failure [None]
  - Dehydration [None]
  - Constipation [None]
  - Dysphagia [None]
  - Dementia Alzheimer^s type [None]
  - Parkinsonism [None]
  - Atelectasis [None]
  - Hiccups [None]
  - Benign prostatic hyperplasia [None]
  - Failure to thrive [None]
